FAERS Safety Report 11901625 (Version 1)
Quarter: 2016Q1

REPORT INFORMATION
  Report Type: Report from Study
  Country: US (occurrence: US)
  Receive Date: 20160108
  Receipt Date: 20160108
  Transmission Date: 20160526
  Serious: No
  Sender: FDA-Public Use
  Company Number: US-ABBVIE-15P-163-1507350-00

PATIENT
  Age: 62 Year
  Sex: Male

DRUGS (2)
  1. RIBAVIRIN. [Concomitant]
     Active Substance: RIBAVIRIN
     Indication: HEPATITIS C
     Route: 048
  2. VIEKIRA PAK [Suspect]
     Active Substance: DASABUVIR\OMBITASVIR\PARITAPREVIR\RITONAVIR
     Indication: HEPATITIS C
     Dosage: IN THE AM AND THE PM
     Route: 048

REACTIONS (4)
  - Respiratory tract congestion [Recovering/Resolving]
  - Nasopharyngitis [Recovering/Resolving]
  - Fatigue [Recovering/Resolving]
  - Productive cough [Recovering/Resolving]

NARRATIVE: CASE EVENT DATE: 201511
